FAERS Safety Report 20370957 (Version 2)
Quarter: 2022Q1

REPORT INFORMATION
  Report Type: Report from Study
  Country: TW (occurrence: None)
  Receive Date: 20220124
  Receipt Date: 20220214
  Transmission Date: 20220424
  Serious: Yes (Death)
  Sender: FDA-Public Use
  Company Number: 2022A036984

PATIENT
  Age: 64 Year
  Sex: Female

DRUGS (1)
  1. IMFINZI [Suspect]
     Active Substance: DURVALUMAB
     Dosage: 480.0MG UNKNOWN
     Route: 042
     Dates: start: 20211129

REACTIONS (1)
  - Death [Fatal]

NARRATIVE: CASE EVENT DATE: 20220104
